FAERS Safety Report 10034493 (Version 2)
Quarter: 2014Q2

REPORT INFORMATION
  Report Type: Spontaneous
  Country: US (occurrence: US)
  Receive Date: 20140325
  Receipt Date: 20140630
  Transmission Date: 20141212
  Serious: Yes (Hospitalization)
  Sender: FDA-Public Use
  Company Number: US-BAYER-2014-043155

PATIENT
  Age: 42 Year
  Sex: Female

DRUGS (4)
  1. YASMIN [Suspect]
     Indication: PREMENSTRUAL SYNDROME
  2. YASMIN [Suspect]
     Indication: CONTRACEPTION
  3. ULTRAM [Concomitant]
  4. TYLENOL 1 [Concomitant]
     Dosage: UNK UNK, PRN

REACTIONS (2)
  - Pulmonary embolism [Recovered/Resolved]
  - Deep vein thrombosis [Recovered/Resolved]
